FAERS Safety Report 5959661-8 (Version None)
Quarter: 2008Q4

REPORT INFORMATION
  Report Type: 
  Country: None (occurrence: None)
  Receive Date: 20081120
  Receipt Date: 20081107
  Transmission Date: 20090506
  Serious: Yes (Death, Life-Threatening, Other)
  Sender: FDA-Public Use
  Company Number: DE-NOVOPROD-261368

PATIENT
  Sex: Female
  Weight: 79 kg

DRUGS (17)
  1. NOVOSEVEN [Suspect]
     Indication: THROMBASTHENIA
     Dosage: 720 KIU, QD
     Dates: start: 20070206, end: 20070206
  2. NOVOSEVEN [Suspect]
     Dosage: 360 KIU, UNK
     Route: 042
     Dates: start: 20070222
  3. NOVOSEVEN [Suspect]
     Dosage: 360 UNK, UNK
     Route: 042
     Dates: start: 20070222
  4. NOVOSEVEN [Suspect]
     Dosage: 360 UNK, UNK
     Route: 042
     Dates: start: 20070222
  5. NOVOSEVEN [Suspect]
     Dosage: 360 UNK, UNK
     Route: 042
     Dates: start: 20070222
  6. NOVOSEVEN [Suspect]
     Dosage: 360 UNK, UNK
     Route: 042
     Dates: start: 20070222
  7. NOVOSEVEN [Suspect]
     Dosage: 360 UNK, UNK
     Route: 042
     Dates: start: 20070222
  8. NOVOSEVEN [Suspect]
     Dosage: 360 UNK, UNK
     Route: 042
     Dates: start: 20070223
  9. NOVOSEVEN [Suspect]
     Dosage: 360 UNK, UNK
     Route: 042
     Dates: start: 20070223, end: 20070223
  10. NOVOSEVEN [Suspect]
     Dates: start: 20070226, end: 20070226
  11. NOVOSEVEN [Suspect]
     Dates: start: 20070309, end: 20070309
  12. PLATELETS [Concomitant]
     Indication: PREOPERATIVE CARE
     Dates: start: 20070206, end: 20070206
  13. TRANEXAMIC ACID [Concomitant]
     Dosage: 2 G, QD
     Route: 042
     Dates: start: 20070222, end: 20070223
  14. PLATELETS [Concomitant]
     Route: 042
     Dates: start: 20070222, end: 20070223
  15. RED BLOOD CELLS [Concomitant]
     Dosage: UNK, UNK
     Route: 042
     Dates: start: 20070222, end: 20070223
  16. FIBRINOGEN [Concomitant]
     Dosage: 2 G, UNK
  17. FIBRINOGEN [Concomitant]
     Dosage: UNK, UNK

REACTIONS (5)
  - CEREBRAL HAEMORRHAGE [None]
  - DISSEMINATED INTRAVASCULAR COAGULATION [None]
  - POSTOPERATIVE RENAL FAILURE [None]
  - THROMBOCYTOPENIA [None]
  - THROMBOSIS [None]
